FAERS Safety Report 5190894-7 (Version None)
Quarter: 2006Q4

REPORT INFORMATION
  Report Type: 
  Country: None (occurrence: None)
  Receive Date: 20061222
  Receipt Date: 20060825
  Transmission Date: 20070319
  Serious: Yes (Other)
  Sender: FDA-Public Use
  Company Number: US-ELI_LILLY_AND_COMPANY-US200609004420

PATIENT
  Age: 41 Year
  Sex: Male
  Weight: 127.44 kg

DRUGS (1)
  1. ZYPREXA [Suspect]
     Dosage: 10 MG, UNK
     Route: 048
     Dates: start: 19980101, end: 20000101

REACTIONS (4)
  - DIABETES MELLITUS [None]
  - HEPATITIS VIRAL [None]
  - HYPERTENSION [None]
  - METABOLIC DISORDER [None]
